FAERS Safety Report 6053231-1 (Version None)
Quarter: 2009Q1

REPORT INFORMATION
  Report Type: 
  Country: None (occurrence: None)
  Receive Date: 20090123
  Receipt Date: 20081209
  Transmission Date: 20090719
  Serious: Yes (Hospitalization)
  Sender: FDA-Public Use
  Company Number: 2008S1021879

PATIENT
  Age: 34 Year
  Sex: Female

DRUGS (2)
  1. NICARDIPINE HCL [Suspect]
     Indication: TOCOLYSIS
     Dosage: INTRAVENOUS DRIP; ORAL
     Route: 041
  2. BETAMETHASONE [Concomitant]

REACTIONS (6)
  - DRUG EXPOSURE DURING PREGNANCY [None]
  - PLEURAL EFFUSION [None]
  - PNEUMONIA PRIMARY ATYPICAL [None]
  - PULMONARY OEDEMA [None]
  - RESPIRATORY ALKALOSIS [None]
  - RESPIRATORY DISTRESS [None]
